FAERS Safety Report 8266945-X (Version None)
Quarter: 2012Q2

REPORT INFORMATION
  Report Type: 
  Country: None (occurrence: None)
  Receive Date: 20120404
  Receipt Date: 20120404
  Transmission Date: 20120825
  Serious: Yes (Hospitalization)
  Sender: FDA-Public Use
  Company Number: None

PATIENT
  Age: 72 Year
  Sex: Female
  Weight: 69.9 kg

DRUGS (19)
  1. POTASSIUM [Concomitant]
  2. RANITIDINE [Concomitant]
  3. MOM [Concomitant]
  4. PLAVIX [Suspect]
     Indication: CORONARY ARTERY DISEASE
     Dosage: 75MG QDAY PO CHRONIC
     Route: 048
  5. LASIX [Concomitant]
  6. VITAMIN D [Concomitant]
  7. FISH OIL [Concomitant]
  8. CELEBREX [Suspect]
     Dosage: 200MG QDAY PO CHRONIC
     Route: 048
  9. ASPIRIN [Suspect]
     Indication: CORONARY ARTERY DISEASE
     Dosage: 81MG QDAY PO CHRONIC
     Route: 048
  10. NITROGLYCERIN [Concomitant]
  11. CALCIUM CARBONATE [Concomitant]
  12. PEPCID [Concomitant]
  13. COLACE [Concomitant]
  14. SIMVASTATIN [Concomitant]
  15. ZETIA [Concomitant]
  16. DILTIAZEM [Concomitant]
  17. METOPROLOL TARTRATE [Concomitant]
  18. GABAPENTIN [Concomitant]
  19. OXYCODONE HCL AND ACETAMINOPHEN [Concomitant]

REACTIONS (9)
  - CHEST DISCOMFORT [None]
  - SUPRAVENTRICULAR TACHYCARDIA [None]
  - ANAEMIA POSTOPERATIVE [None]
  - UPPER GASTROINTESTINAL HAEMORRHAGE [None]
  - GASTRIC ULCER [None]
  - HAEMORRHAGIC ANAEMIA [None]
  - HIP FRACTURE [None]
  - UTERINE DILATION AND CURETTAGE [None]
  - GASTRITIS EROSIVE [None]
